FAERS Safety Report 20346295 (Version 3)
Quarter: 2022Q1

REPORT INFORMATION
  Report Type: Spontaneous
  Country: US (occurrence: US)
  Receive Date: 20220118
  Receipt Date: 20220127
  Transmission Date: 20220424
  Serious: Yes (Hospitalization, Other)
  Sender: FDA-Public Use
  Company Number: US-PFIZER INC-202200022034

PATIENT
  Age: 59 Year
  Sex: Female
  Weight: 78.67 kg

DRUGS (1)
  1. IBRANCE [Suspect]
     Active Substance: PALBOCICLIB
     Indication: Breast cancer female
     Dosage: 125 MG, CYCLIC (ONE TABLET A DAY FOR THREE WEEKS AND THEN ONE WEEK OFF)
     Route: 048
     Dates: start: 20210830

REACTIONS (2)
  - COVID-19 pneumonia [Recovered/Resolved]
  - Alopecia [Unknown]

NARRATIVE: CASE EVENT DATE: 20220103
